FAERS Safety Report 7321417-1 (Version None)
Quarter: 2011Q1

REPORT INFORMATION
  Report Type: 
  Country: None (occurrence: None)
  Receive Date: 20110228
  Receipt Date: 20110221
  Transmission Date: 20110831
  Serious: Yes (Other)
  Sender: FDA-Public Use
  Company Number: US-SANOFI-AVENTIS-2011SA001777

PATIENT
  Age: 56 Year
  Sex: Female

DRUGS (2)
  1. OPTICLICK [Suspect]
     Indication: TYPE 2 DIABETES MELLITUS
     Dates: start: 20040101
  2. LANTUS [Suspect]
     Indication: TYPE 2 DIABETES MELLITUS
     Dosage: 20-21 UNITS NIGHTLY
     Route: 058
     Dates: start: 20040101

REACTIONS (2)
  - PRODUCT QUALITY ISSUE [None]
  - HYPOGLYCAEMIA [None]
